FAERS Safety Report 9704941 (Version 3)
Quarter: 2013Q4

REPORT INFORMATION
  Report Type: Spontaneous
  Country: GB (occurrence: GB)
  Receive Date: 20131122
  Receipt Date: 20131202
  Transmission Date: 20140711
  Serious: Yes (Life-Threatening, Other)
  Sender: FDA-Public Use
  Company Number: PHFR2013GB006621

PATIENT
  Sex: Female

DRUGS (3)
  1. VOLTAROL RETARD [Suspect]
     Indication: OSTEOARTHRITIS
     Dosage: 100 MG, QD
     Route: 048
  2. VOLTAROL RETARD [Suspect]
     Indication: SPINAL OSTEOARTHRITIS
  3. THYROXINE [Concomitant]
     Dosage: UNK UKN, UNK

REACTIONS (6)
  - Hyperthyroidism [Not Recovered/Not Resolved]
  - Gastric ulcer [Recovered/Resolved]
  - Cerebrovascular accident [Unknown]
  - Gait disturbance [Unknown]
  - Inflammation [Unknown]
  - Insomnia [Unknown]
